FAERS Safety Report 9315430 (Version 2)
Quarter: 2013Q3

REPORT INFORMATION
  Report Type: Spontaneous
  Country: DE (occurrence: DE)
  Receive Date: 20130529
  Receipt Date: 20130705
  Transmission Date: 20140515
  Serious: Yes (Death, Life-Threatening)
  Sender: FDA-Public Use
  Company Number: DE-ASTRAZENECA-2013SE37501

PATIENT
  Age: 26398 Day
  Sex: Male
  Weight: 85 kg

DRUGS (3)
  1. BRILIQUE [Suspect]
     Indication: CORONARY ARTERY DISEASE
     Route: 048
     Dates: start: 20130321
  2. ASS [Concomitant]
     Indication: CORONARY ARTERY DISEASE
     Route: 048
     Dates: start: 20130321
  3. BELOK-ZOK [Concomitant]
     Indication: CORONARY ARTERY DISEASE
     Route: 048
     Dates: start: 20130321

REACTIONS (1)
  - Thrombosis in device [Fatal]
